FAERS Safety Report 5930197-3 (Version None)
Quarter: 2008Q4

REPORT INFORMATION
  Report Type: 
  Country: None (occurrence: None)
  Receive Date: 20081009
  Receipt Date: 20080326
  Transmission Date: 20090506
  Serious: Yes (Hospitalization)
  Sender: FDA-Public Use
  Company Number: PHEH2008US02810

PATIENT
  Age: 33 Year
  Sex: Male

DRUGS (15)
  1. ZOMETA [Suspect]
     Indication: MULTIPLE MYELOMA
     Dosage: 4 MG MONTHLY, INTRAVENOUS
     Route: 042
     Dates: start: 20080121
  2. DECADRON [Suspect]
     Indication: MULTIPLE MYELOMA
     Dosage: 10 MG DAYS 1, 4, 8, 11
     Dates: start: 20080121
  3. VELCADE [Suspect]
     Indication: MULTIPLE MYELOMA
     Dosage: 1.3 MG/M2 DAYS 1, 4, 8 AND 11
     Dates: start: 20080121
  4. BACTRIM [Suspect]
     Dosage: MONDAY, WEDNESDAY, AND FRIDAY, ORAL
     Route: 048
     Dates: start: 20080114
  5. VALTREX [Suspect]
     Dosage: 500 MG, QD
     Dates: start: 20080114
  6. REVLIMID [Suspect]
     Dosage: 15 MG, QD
  7. CLOZAPINE [Concomitant]
  8. ASPIRIN [Concomitant]
  9. DEPAKOTE [Concomitant]
  10. LIPITOR [Concomitant]
  11. METOPROLOL TARTRATE [Concomitant]
  12. PROTONIX [Concomitant]
  13. TRICOR [Concomitant]
  14. PRO-AIR (PROCATEROL HYDROCHLORIDE) (PROCATEROL HYDROCHLORIDE) [Concomitant]
  15. COUMADIN [Concomitant]

REACTIONS (1)
  - PYREXIA [None]
